FAERS Safety Report 6778791-4 (Version None)
Quarter: 2010Q2

REPORT INFORMATION
  Report Type: 
  Country: None (occurrence: None)
  Receive Date: 20100618
  Receipt Date: 20100608
  Transmission Date: 20101027
  Serious: Yes (Hospitalization)
  Sender: FDA-Public Use
  Company Number: CA-JNJFOC-20100603510

PATIENT
  Sex: Female

DRUGS (9)
  1. SIMPONI [Suspect]
     Indication: RHEUMATOID ARTHRITIS
     Route: 058
  2. SIMPONI [Suspect]
     Route: 058
  3. ATACAND [Concomitant]
  4. LIPITOR [Concomitant]
  5. METHOTREXATE [Concomitant]
     Route: 058
  6. FUROSEMIDE [Concomitant]
  7. SINGULAIR [Concomitant]
  8. FOLIC ACID [Concomitant]
  9. REPAGLINIDE [Concomitant]

REACTIONS (1)
  - PNEUMONIA [None]
